FAERS Safety Report 17510088 (Version 1)
Quarter: 2020Q1

REPORT INFORMATION
  Report Type: Spontaneous
  Country: US (occurrence: US)
  Receive Date: 20200306
  Receipt Date: 20200306
  Transmission Date: 20200409
  Serious: Yes (Death, Life-Threatening, Hospitalization)
  Sender: FDA-Public Use
  Company Number: None

PATIENT
  Age: 58 Year
  Sex: Female
  Weight: 79 kg

DRUGS (1)
  1. XELJANZ [Suspect]
     Active Substance: TOFACITINIB CITRATE
     Indication: RHEUMATOID ARTHRITIS
     Route: 048
     Dates: end: 20200212

REACTIONS (12)
  - Swelling face [None]
  - Lymphopenia [None]
  - Influenza A virus test positive [None]
  - Acute kidney injury [None]
  - Influenza B virus test positive [None]
  - Subarachnoid haemorrhage [None]
  - Blood culture positive [None]
  - Diarrhoea [None]
  - Pyrexia [None]
  - Streptococcal sepsis [None]
  - Campylobacter test positive [None]
  - Thrombocytopenia [None]

NARRATIVE: CASE EVENT DATE: 20200212
